FAERS Safety Report 11335136 (Version 1)
Quarter: 2015Q3

REPORT INFORMATION
  Report Type: Spontaneous
  Country: DE (occurrence: DE)
  Receive Date: 20150804
  Receipt Date: 20150804
  Transmission Date: 20151125
  Serious: Yes (Hospitalization)
  Sender: FDA-Public Use
  Company Number: DE-WATSON-2015-15983

PATIENT
  Age: 37 Year
  Sex: Female

DRUGS (11)
  1. CITALOPRAM [Suspect]
     Active Substance: CITALOPRAM HYDROBROMIDE
     Indication: PRODUCT USED FOR UNKNOWN INDICATION
     Dosage: 10 UNK, UNKNOWN
     Route: 065
     Dates: start: 20100330, end: 20100331
  2. ELONTRIL [Interacting]
     Active Substance: BUPROPION HYDROCHLORIDE
     Dosage: 300 UNK, UNKNOWN
     Route: 065
     Dates: start: 20100420, end: 20100506
  3. ERGENYL CHRONO [Concomitant]
     Active Substance: VALPROIC ACID
     Indication: PRODUCT USED FOR UNKNOWN INDICATION
     Dosage: 600 UNK, UNKNOWN
     Route: 065
     Dates: start: 20100518
  4. ERGENYL CHRONO [Concomitant]
     Active Substance: VALPROIC ACID
     Dosage: 450 UNK, UNKNOWN
     Route: 065
     Dates: start: 20100515, end: 20100517
  5. ERGENYL CHRONO [Concomitant]
     Active Substance: VALPROIC ACID
     Dosage: 150 UNK, UNKNOWN
     Route: 065
     Dates: start: 20100510, end: 20100512
  6. JODID [Concomitant]
     Active Substance: IODINE
     Indication: PRODUCT USED FOR UNKNOWN INDICATION
     Dosage: 0,1 UNK, UNKNOWN
     Route: 065
     Dates: start: 20100414
  7. ELONTRIL [Interacting]
     Active Substance: BUPROPION HYDROCHLORIDE
     Indication: PRODUCT USED FOR UNKNOWN INDICATION
     Dosage: 150 UNK, UNKNOWN
     Route: 065
     Dates: start: 20100507, end: 20100515
  8. ERGENYL CHRONO [Concomitant]
     Active Substance: VALPROIC ACID
     Dosage: 300 UNK, UNKNOWN
     Route: 065
     Dates: start: 20100513, end: 20100514
  9. CITALOPRAM [Interacting]
     Active Substance: CITALOPRAM HYDROBROMIDE
     Dosage: 20 UNK, UNKNOWN
     Route: 065
     Dates: start: 20100327, end: 20100329
  10. ELONTRIL [Interacting]
     Active Substance: BUPROPION HYDROCHLORIDE
     Dosage: 150 UNK, UNK
     Route: 065
     Dates: start: 20100406, end: 20100419
  11. CITALOPRAM [Interacting]
     Active Substance: CITALOPRAM HYDROBROMIDE
     Dosage: 40 UNK, UNKNOWN
     Route: 065
     Dates: start: 20100325, end: 20100326

REACTIONS (5)
  - Abdominal pain [Recovered/Resolved]
  - Metrorrhagia [Recovered/Resolved]
  - Breast swelling [Recovered/Resolved]
  - Breast pain [Recovered/Resolved]
  - Drug interaction [Recovered/Resolved]

NARRATIVE: CASE EVENT DATE: 20100415
